FAERS Safety Report 5323856-7 (Version None)
Quarter: 2007Q2

REPORT INFORMATION
  Report Type: 
  Country: None (occurrence: None)
  Receive Date: 20070514
  Receipt Date: 20070509
  Transmission Date: 20071010
  Serious: Yes (Hospitalization)
  Sender: FDA-Public Use
  Company Number: D0052284A

PATIENT
  Age: 65 Year
  Sex: Male
  Weight: 83 kg

DRUGS (3)
  1. QUILONUM RETARD [Suspect]
     Route: 048
  2. ACE-HEMMER [Suspect]
     Dosage: 1TAB PER DAY
     Route: 048
  3. SEROQUEL [Suspect]
     Dosage: 1TAB PER DAY
     Route: 048

REACTIONS (6)
  - CONFUSIONAL STATE [None]
  - DRUG LEVEL INCREASED [None]
  - LETHARGY [None]
  - NAUSEA [None]
  - RENAL IMPAIRMENT [None]
  - VOMITING [None]
